APPROVED DRUG PRODUCT: GALANTAMINE HYDROBROMIDE
Active Ingredient: GALANTAMINE HYDROBROMIDE
Strength: 4MG/ML
Dosage Form/Route: SOLUTION;ORAL
Application: A078185 | Product #001
Applicant: HIKMA PHARMACEUTICALS USA INC
Approved: Jan 30, 2009 | RLD: No | RS: Yes | Type: RX